FAERS Safety Report 5273688-3 (Version None)
Quarter: 2007Q1

REPORT INFORMATION
  Report Type: 
  Country: None (occurrence: None)
  Receive Date: 20070323
  Receipt Date: 20070312
  Transmission Date: 20070707
  Serious: Yes (Hospitalization)
  Sender: FDA-Public Use
  Company Number: US-NOVOPROD-252040

PATIENT
  Sex: Female
  Weight: 59.864 kg

DRUGS (9)
  1. VAGIFEM [Suspect]
     Indication: ATROPHIC VULVOVAGINITIS
     Dates: start: 20050601, end: 20060312
  2. EVISTA [Concomitant]
     Dosage: 60 MG, QD
     Route: 048
     Dates: start: 20020101
  3. VITAMIN E [Concomitant]
     Dosage: 400 IU, QD
     Route: 048
     Dates: start: 20000101
  4. MOTRIN [Concomitant]
     Dosage: 1800 MG, QD
     Route: 048
     Dates: start: 20060301, end: 20060319
  5. MOTRIN [Concomitant]
     Dosage: 300 MG, QD
     Route: 048
     Dates: start: 20060327
  6. GLUCOSAMINE W/CHONDROITIN [Concomitant]
     Dosage: 1 TAB, QD
     Route: 048
     Dates: start: 20000101
  7. CALCIUM WITH VITAMIN D [Concomitant]
     Dosage: 500MG/ 200IU
     Route: 048
     Dates: start: 20000101
  8. MULTI-VITAMINS [Concomitant]
     Dosage: 1 TAB, QD
     Route: 048
     Dates: start: 20020101
  9. PERCOCET [Concomitant]
     Indication: PAIN
     Dosage: 2 TAB, PRN
     Route: 048

REACTIONS (2)
  - CHOLECYSTITIS ACUTE [None]
  - CHOLELITHIASIS [None]
